FAERS Safety Report 25910860 (Version 1)
Quarter: 2025Q4

REPORT INFORMATION
  Report Type: Spontaneous
  Country: US (occurrence: US)
  Receive Date: 20251013
  Receipt Date: 20251013
  Transmission Date: 20260117
  Serious: No
  Sender: ELI LILLY AND COMPANY
  Company Number: US-ELI_LILLY_AND_COMPANY-US202510003419

PATIENT
  Age: 51 Year
  Sex: Female

DRUGS (3)
  1. EMGALITY [Suspect]
     Active Substance: GALCANEZUMAB-GNLM
     Indication: Migraine
     Dosage: 240 MG, UNKNOWN (LOADING DOSE)
     Route: 058
  2. EMGALITY [Suspect]
     Active Substance: GALCANEZUMAB-GNLM
     Indication: Cluster headache
     Dosage: 120 MG, UNKNOWN
     Route: 058
     Dates: start: 202509
  3. REYVOW [Concomitant]
     Active Substance: LASMIDITAN
     Indication: Migraine
     Dosage: UNK UNK, UNKNOWN
     Route: 065

REACTIONS (2)
  - Injection site pain [Recovered/Resolved]
  - Intercepted product prescribing error [Recovered/Resolved]
